FAERS Safety Report 8547424-9 (Version None)
Quarter: 2012Q3

REPORT INFORMATION
  Report Type: 
  Country: None (occurrence: None)
  Receive Date: 20120727
  Receipt Date: 20120412
  Transmission Date: 20120928
  Serious: No
  Sender: FDA-Public Use
  Company Number: US-ASTRAZENECA-2012SE24404

PATIENT
  Age: 14 Year
  Sex: Female
  Weight: 51.7 kg

DRUGS (3)
  1. SEROQUEL XR [Suspect]
     Indication: SLEEP DISORDER
     Route: 048
  2. PROZAC [Concomitant]
     Indication: OBSESSIVE-COMPULSIVE DISORDER
  3. SEROQUEL XR [Suspect]
     Route: 048

REACTIONS (2)
  - ANXIETY DISORDER [None]
  - DRUG ADMINISTERED TO PATIENT OF INAPPROPRIATE AGE [None]
